FAERS Safety Report 6523742-0 (Version None)
Quarter: 2009Q4

REPORT INFORMATION
  Report Type: 
  Country: None (occurrence: None)
  Receive Date: 20091230
  Receipt Date: 20091230
  Transmission Date: 20100525
  Serious: Yes (Life-Threatening, Hospitalization)
  Sender: FDA-Public Use
  Company Number: None

PATIENT
  Age: 61 Year
  Sex: Male
  Weight: 85 kg

DRUGS (8)
  1. SIMVASTATIN [Suspect]
     Indication: HYPERCHOLESTEROLAEMIA
     Dosage: 40 MG, 1 IN 1 D, ORAL
     Route: 048
     Dates: start: 20050711
  2. CLOPIDOGREL BISULPHATE (CLOPIDOGREL) [Concomitant]
  3. RAMIPRIL [Concomitant]
  4. ASPIRIN [Concomitant]
  5. BECLOMETHASONE DIPROPIONATE (BECLOMETASONE) [Concomitant]
  6. DOXAZOSIN MESYLATE (DOXASOSIN) [Concomitant]
  7. GLYCERYL TRINITRATE [Suspect]
  8. NICORANDIL [Concomitant]

REACTIONS (3)
  - ACUTE MYOCARDIAL INFARCTION [None]
  - CONJUNCTIVITIS ALLERGIC [None]
  - DEPRESSION [None]
